FAERS Safety Report 14006128 (Version 1)
Quarter: 2017Q3

REPORT INFORMATION
  Report Type: Spontaneous
  Country: JP (occurrence: JP)
  Receive Date: 20170924
  Receipt Date: 20170924
  Transmission Date: 20171128
  Serious: Yes (Other)
  Sender: FDA-Public Use
  Company Number: JP-MYLANLABS-2017M1059228

PATIENT
  Age: 54 Year
  Sex: Male

DRUGS (4)
  1. LITHIUM. [Interacting]
     Active Substance: LITHIUM
     Dosage: 600 MG/D AND LATER THE DOSE WAS INCREASED TO 1200MG/D
     Route: 065
  2. LITHIUM. [Interacting]
     Active Substance: LITHIUM
     Dosage: 1200 MG/D AND LATER THE DOSE WAS INCREASED TO 1400MG/D
     Route: 065
  3. LITHIUM. [Suspect]
     Active Substance: LITHIUM
     Indication: BIPOLAR DISORDER
     Dosage: 400 MG/D AND LATER THE DOSE WAS INCREASED TO 600MG/D
     Route: 065
  4. LITHIUM. [Interacting]
     Active Substance: LITHIUM
     Dosage: 1400 MG/DAY
     Route: 065

REACTIONS (2)
  - Labelled drug-food interaction medication error [Recovering/Resolving]
  - Antipsychotic drug level decreased [Recovering/Resolving]
